FAERS Safety Report 7806028-3 (Version None)
Quarter: 2011Q4

REPORT INFORMATION
  Report Type: 
  Country: None (occurrence: None)
  Receive Date: 20111011
  Receipt Date: 20110929
  Transmission Date: 20120403
  Serious: Yes (Other)
  Sender: FDA-Public Use
  Company Number: BR-JNJFOC-20111000652

PATIENT
  Sex: Female
  Weight: 54 kg

DRUGS (3)
  1. METHOTREXATE [Suspect]
     Indication: RHEUMATOID ARTHRITIS
     Route: 048
     Dates: start: 20050101, end: 20090101
  2. REMICADE [Suspect]
     Indication: RHEUMATOID ARTHRITIS
     Route: 042
     Dates: start: 20050101, end: 20090101
  3. METHOTREXATE [Suspect]
     Route: 030

REACTIONS (3)
  - NEPHROPATHY TOXIC [None]
  - BLOOD PRESSURE INCREASED [None]
  - WEIGHT INCREASED [None]
